FAERS Safety Report 24062221 (Version 3)
Quarter: 2024Q3

REPORT INFORMATION
  Report Type: Spontaneous
  Country: FR (occurrence: FR)
  Receive Date: 20240708
  Receipt Date: 20240920
  Transmission Date: 20241016
  Serious: Yes (Hospitalization, Other)
  Sender: GUERBET
  Company Number: FR-GUERBETG-FR-20240249

PATIENT
  Age: 38 Year
  Sex: Female
  Weight: 62 kg

DRUGS (4)
  1. LIPIODOL ULTRA-FLUIDE [Suspect]
     Active Substance: ETHIODIZED OIL
     Indication: Therapeutic embolisation
     Dosage: A MIXTURE OF 5.5 ML OF LIPIODOL ULTRA FLUID WITH GLUBRAN 2 ON 04 NOVEMBER 2019.?ANOTHER MIXTURE OF 5
     Route: 042
     Dates: start: 20191104, end: 20201019
  2. LIPIODOL ULTRA-FLUIDE [Suspect]
     Active Substance: ETHIODIZED OIL
     Dosage: A MIXTURE OF 5 ML OF LIPIODOL ULTRA FLUID WITH GLUBRAN 2.
     Route: 042
     Dates: start: 20201019, end: 20201019
  3. DEVICE [Suspect]
     Active Substance: DEVICE
     Indication: Therapeutic embolisation
     Dosage: A MIXTURE OF 5.5 ML OF LIPIODOL ULTRA FLUID WITH GLUBRAN 2.
     Route: 042
     Dates: start: 20191104, end: 20191104
  4. DEVICE [Suspect]
     Active Substance: DEVICE
     Dosage: A MIXTURE OF 5 ML OF LIPIODOL ULTRA FLUID WITH GLUBRAN 2.
     Route: 042
     Dates: start: 20201019, end: 20201019

REACTIONS (3)
  - Off label use [Recovered/Resolved]
  - Iodine overload [Recovered/Resolved]
  - Hyperthyroidism [Recovered/Resolved]

NARRATIVE: CASE EVENT DATE: 20191104
